FAERS Safety Report 19120594 (Version 1)
Quarter: 2021Q2

REPORT INFORMATION
  Report Type: Spontaneous
  Country: US (occurrence: US)
  Receive Date: 20210409
  Receipt Date: 20210409
  Transmission Date: 20210717
  Serious: No
  Sender: FDA-Public Use
  Company Number: None

PATIENT
  Age: 21 Year
  Sex: Female
  Weight: 69.75 kg

DRUGS (1)
  1. MONISTAT 1 COMBINATION PACK [Suspect]
     Active Substance: MICONAZOLE NITRATE
     Indication: FUNGAL INFECTION
     Dosage: ?          QUANTITY:1 OVULE;?
     Route: 067
     Dates: start: 20181023, end: 20181024

REACTIONS (6)
  - Erythema [None]
  - Pain [None]
  - Pruritus [None]
  - Swelling [None]
  - Skin laceration [None]
  - Burning sensation [None]

NARRATIVE: CASE EVENT DATE: 20181023
